FAERS Safety Report 7868142-6 (Version None)
Quarter: 2011Q4

REPORT INFORMATION
  Report Type: 
  Country: None (occurrence: None)
  Receive Date: 20111028
  Receipt Date: 20111014
  Transmission Date: 20120403
  Serious: Yes (Hospitalization, Other)
  Sender: FDA-Public Use
  Company Number: CA-ELI_LILLY_AND_COMPANY-CA201110003552

PATIENT
  Sex: Male

DRUGS (14)
  1. ZYPREXA [Suspect]
     Indication: SCHIZOAFFECTIVE DISORDER
     Dosage: 10 MG, EACH EVENING
     Dates: start: 20001219
  2. ZYPREXA [Suspect]
     Dosage: 20 MG, QD
  3. ZYPREXA [Suspect]
     Dosage: 15 MG, EACH EVENING
  4. ZOPICLONE [Concomitant]
  5. VALPROATE SODIUM [Concomitant]
  6. BENZTROPINE MESYLATE [Concomitant]
  7. CLOZAPINE [Concomitant]
  8. RISPERDAL [Concomitant]
  9. CLOPIXOL [Concomitant]
  10. NOZINAN [Concomitant]
  11. CLONAZEPAM [Concomitant]
  12. ZYPREXA [Suspect]
     Dosage: 20 MG, QD
     Dates: end: 20040101
  13. TRAZODONE HYDROCHLORIDE [Concomitant]
  14. EFFEXOR [Concomitant]

REACTIONS (13)
  - MYOCARDIAL INFARCTION [None]
  - CARDIOMYOPATHY [None]
  - HEPATOSPLENOMEGALY [None]
  - SLEEP APNOEA SYNDROME [None]
  - HYPERCHOLESTEROLAEMIA [None]
  - BLOOD TRIGLYCERIDES INCREASED [None]
  - CHEST PAIN [None]
  - WEIGHT INCREASED [None]
  - DIABETES MELLITUS [None]
  - HYPERTENSION [None]
  - HYPERGLYCAEMIA [None]
  - ELECTROCARDIOGRAM QT PROLONGED [None]
  - HEPATIC STEATOSIS [None]
